FAERS Safety Report 11044391 (Version 1)
Quarter: 2015Q2

REPORT INFORMATION
  Report Type: Spontaneous
  Country: US (occurrence: US)
  Receive Date: 20150417
  Receipt Date: 20150417
  Transmission Date: 20150821
  Serious: No
  Sender: FDA-Public Use
  Company Number: US-PFIZER INC-2015129512

PATIENT
  Sex: Female

DRUGS (10)
  1. AMOXICILLIN. [Suspect]
     Active Substance: AMOXICILLIN
     Dosage: UNK
  2. CIPRO [Suspect]
     Active Substance: CIPROFLOXACIN HYDROCHLORIDE
     Dosage: UNK
  3. CODEINE [Suspect]
     Active Substance: CODEINE
     Dosage: UNK
  4. HYDROCODONE [Suspect]
     Active Substance: HYDROCODONE
     Dosage: UNK
  5. FLAGYL [Suspect]
     Active Substance: METRONIDAZOLE\METRONIDAZOLE HYDROCHLORIDE
     Dosage: UNK
  6. TERCONAZOLE. [Suspect]
     Active Substance: TERCONAZOLE
     Dosage: UNK
     Route: 061
  7. TRAMADOL [Suspect]
     Active Substance: TRAMADOL
     Dosage: UNK
  8. SULFUR. [Suspect]
     Active Substance: SULFUR
     Dosage: UNK
     Route: 061
  9. FLEXERIL [Suspect]
     Active Substance: CYCLOBENZAPRINE HYDROCHLORIDE
     Dosage: UNK
  10. CHLORINE [Suspect]
     Active Substance: CHLORINE
     Dosage: UNK

REACTIONS (1)
  - Drug hypersensitivity [Unknown]
